FAERS Safety Report 26144818 (Version 1)
Quarter: 2025Q4

REPORT INFORMATION
  Report Type: Spontaneous
  Country: US (occurrence: US)
  Receive Date: 20251211
  Receipt Date: 20251211
  Transmission Date: 20260117
  Serious: No
  Sender: ALCON
  Company Number: US-ALCON LABORATORIES-ALC2025US004745

PATIENT
  Sex: Female

DRUGS (2)
  1. ACOLTREMON [Suspect]
     Active Substance: ACOLTREMON
     Indication: Eye pain
     Dosage: UNK
     Route: 047
     Dates: start: 20250731, end: 20250815
  2. ACOLTREMON [Suspect]
     Active Substance: ACOLTREMON
     Indication: Dry eye

REACTIONS (1)
  - Drug ineffective [Unknown]
